FAERS Safety Report 6161539-4 (Version None)
Quarter: 2009Q2

REPORT INFORMATION
  Report Type: 
  Country: None (occurrence: None)
  Receive Date: 20090421
  Receipt Date: 20090413
  Transmission Date: 20091009
  Serious: Yes (Other)
  Sender: FDA-Public Use
  Company Number: US-ELI_LILLY_AND_COMPANY-US200904002911

PATIENT
  Age: 57 Year
  Sex: Female

DRUGS (11)
  1. FORTEO [Suspect]
     Dosage: 20 UG, UNK
     Dates: start: 20090201
  2. CRESTOR [Concomitant]
     Dosage: 5 MG, DAILY (1/D)
  3. ZYRTEC [Concomitant]
     Dosage: 10 MG, DAILY (1/D)
  4. ERGOCALCIFEROL [Concomitant]
     Dosage: 1000 MG, 2/D
  5. SINGULAIR [Concomitant]
     Dosage: 10 MG, DAILY (1/D)
  6. VERELAN [Concomitant]
     Dosage: 300 MG, DAILY (1/D)
  7. ATIVAN [Concomitant]
     Dosage: 0.5 MG, DAILY (1/D)
  8. SKELAXIN [Concomitant]
     Dosage: 800 MG, 2/D
  9. AXERT [Concomitant]
     Dosage: 12.5 MG, AS NEEDED
  10. ZANAFLEX [Concomitant]
     Dosage: 4 MG, 2/D
  11. CALCIUM CARBONATE [Concomitant]

REACTIONS (3)
  - LOSS OF CONSCIOUSNESS [None]
  - TREMOR [None]
  - VOMITING [None]
